FAERS Safety Report 19917646 (Version 2)
Quarter: 2021Q4

REPORT INFORMATION
  Report Type: Spontaneous
  Country: US (occurrence: US)
  Receive Date: 20211005
  Receipt Date: 20211101
  Transmission Date: 20220303
  Serious: Yes (Other)
  Sender: FDA-Public Use
  Company Number: US-BLUEPRINT MEDICINES CORPORATION-SP-US-2021-001630

PATIENT
  Age: 71 Year
  Sex: Male

DRUGS (2)
  1. AYVAKIT [Suspect]
     Active Substance: AVAPRITINIB
     Indication: Gastrointestinal stromal tumour
     Route: 048
     Dates: start: 20210428
  2. FUROSEMIDE [Concomitant]
     Active Substance: FUROSEMIDE
     Indication: Fluid retention
     Route: 065

REACTIONS (10)
  - Surgery [Unknown]
  - Weight increased [Unknown]
  - Skin exfoliation [Unknown]
  - Hyperkeratosis [Unknown]
  - Blood creatinine abnormal [Unknown]
  - Hypertension [Unknown]
  - Liver function test increased [Unknown]
  - Fluid retention [Unknown]
  - Dizziness [Unknown]
  - Blood creatinine increased [Unknown]
